FAERS Safety Report 13003624 (Version 2)
Quarter: 2016Q4

REPORT INFORMATION
  Report Type: Report from Study
  Country: JP (occurrence: JP)
  Receive Date: 20161206
  Receipt Date: 20161228
  Transmission Date: 20170207
  Serious: Yes (Hospitalization)
  Sender: FDA-Public Use
  Company Number: JP-EISAI MEDICAL RESEARCH-EC-2016-022892

PATIENT
  Age: 80 Year
  Sex: Female
  Weight: 58 kg

DRUGS (7)
  1. DONEPEZIL. [Suspect]
     Active Substance: DONEPEZIL
     Dosage: PLACEBO OR 10 MG
     Route: 048
     Dates: start: 20160907, end: 20161018
  2. DONEPEZIL. [Suspect]
     Active Substance: DONEPEZIL
     Indication: DEMENTIA WITH LEWY BODIES
     Dosage: PLACEBO OR 3 MG
     Route: 048
     Dates: start: 20160727, end: 20160809
  3. AMLODIPINE BESILATE [Suspect]
     Active Substance: AMLODIPINE BESYLATE
     Indication: PRODUCT USED FOR UNKNOWN INDICATION
     Dosage: UNKNOWN
     Route: 065
     Dates: start: 20161018, end: 20161126
  4. DONEPEZIL. [Suspect]
     Active Substance: DONEPEZIL
     Dosage: 3 MG OR 10 MG
     Route: 048
     Dates: start: 20161019, end: 20161101
  5. TSUMURA YOKUKANSAN EXTRACT GRANULES FOR ETHICAL USE [Suspect]
     Active Substance: HERBALS
     Indication: DEMENTIA WITH LEWY BODIES
     Route: 048
     Dates: start: 20160614, end: 20161129
  6. DONEPEZIL. [Suspect]
     Active Substance: DONEPEZIL
     Dosage: PLACEBO OR 5 MG
     Route: 048
     Dates: start: 20160810, end: 20160906
  7. DONEPEZIL. [Suspect]
     Active Substance: DONEPEZIL
     Dosage: 5 MG OR 10 MG
     Route: 048
     Dates: start: 20161102, end: 20161108

REACTIONS (1)
  - Drug-induced liver injury [Recovering/Resolving]

NARRATIVE: CASE EVENT DATE: 20161018
